FAERS Safety Report 8198332-7 (Version None)
Quarter: 2012Q1

REPORT INFORMATION
  Report Type: 
  Country: None (occurrence: None)
  Receive Date: 20120309
  Receipt Date: 20120229
  Transmission Date: 20120608
  Serious: Yes (Hospitalization, Other)
  Sender: FDA-Public Use
  Company Number: PHEH2008US03152

PATIENT
  Sex: Female

DRUGS (4)
  1. ZOMETA [Suspect]
     Indication: METASTASES TO BONE
  2. MORPHINE [Concomitant]
     Dosage: 40 MG, UNK
  3. AREDIA [Suspect]
  4. METHADON HCL TAB [Concomitant]

REACTIONS (38)
  - PAIN [None]
  - PATHOLOGICAL FRACTURE [None]
  - HIATUS HERNIA [None]
  - RESPIRATORY TRACT INFECTION [None]
  - PHYSICAL DISABILITY [None]
  - METASTASES TO CENTRAL NERVOUS SYSTEM [None]
  - LYMPHADENOPATHY [None]
  - PRODUCTIVE COUGH [None]
  - ABDOMINAL PAIN [None]
  - SCAR [None]
  - DEPRESSION [None]
  - BRONCHITIS [None]
  - INFECTION [None]
  - ARTHRITIS [None]
  - NEOPLASM MALIGNANT [None]
  - ORAL CANDIDIASIS [None]
  - HYPOPHAGIA [None]
  - OSTEONECROSIS OF JAW [None]
  - INJURY [None]
  - ASTHMA [None]
  - METASTASES TO LIVER [None]
  - BREAST MASS [None]
  - COLONIC POLYP [None]
  - CONFUSIONAL STATE [None]
  - ANXIETY [None]
  - MULTIPLE MYELOMA [None]
  - JAW FRACTURE [None]
  - BONE LOSS [None]
  - CEREBROVASCULAR ACCIDENT [None]
  - METASTASES TO BONE [None]
  - PORTAL VEIN THROMBOSIS [None]
  - OTITIS EXTERNA [None]
  - NEOPLASM PROGRESSION [None]
  - DIABETES MELLITUS INADEQUATE CONTROL [None]
  - CHRONIC OBSTRUCTIVE PULMONARY DISEASE [None]
  - EMOTIONAL DISTRESS [None]
  - DIABETES MELLITUS [None]
  - METASTASES TO LUNG [None]
